FAERS Safety Report 4720237-1 (Version None)
Quarter: 2005Q3

REPORT INFORMATION
  Report Type: 
  Country: None (occurrence: None)
  Receive Date: 20050721
  Receipt Date: 20050712
  Transmission Date: 20060218
  Serious: Yes (Other)
  Sender: FDA-Public Use
  Company Number: US-JNJFOC-20050702413

PATIENT
  Age: 29 Year
  Sex: Female

DRUGS (4)
  1. RISPERDAL [Suspect]
     Indication: DRUG USE FOR UNKNOWN INDICATION
  2. LAMICTAL [Suspect]
     Dosage: (PRESCRIBED AS ONCE DAILY, TAKEN AS TWICE DAILY)
     Route: 048
  3. LAMICTAL [Suspect]
     Indication: AFFECTIVE DISORDER
     Route: 048
  4. METHADONE HCL [Suspect]
     Indication: DRUG USE FOR UNKNOWN INDICATION
     Dosage: (TAKEN BY PATIENT AT A DOSE HIGHER THAN PRESCRIBED)

REACTIONS (8)
  - DYSTONIA [None]
  - EYELID MARGIN CRUSTING [None]
  - HEADACHE [None]
  - HEMIPARESIS [None]
  - MUSCULOSKELETAL STIFFNESS [None]
  - NAUSEA [None]
  - SPUTUM DISCOLOURED [None]
  - TREATMENT NONCOMPLIANCE [None]
